FAERS Safety Report 9159441 (Version 1)
Quarter: 2013Q1

REPORT INFORMATION
  Report Type: Spontaneous
  Country: US (occurrence: None)
  Receive Date: 20130215
  Receipt Date: 20130215
  Transmission Date: 20140127
  Serious: Yes (Death, Hospitalization)
  Sender: FDA-Public Use
  Company Number: UTC-028578

PATIENT
  Age: 59 Year
  Sex: Female
  Weight: 75.9 kg

DRUGS (4)
  1. REMODULIN (10 MILLIGRAM/MILLILITERS, INJECTION FOR INFUSION) (TREPROSTINIL SODIUM) [Suspect]
     Indication: PULMONARY ARTERIAL HYPERTENSION
     Dosage: 64.8 UG/KG (0.045 UG/KG, 1 IN 1 MIN), SUBCUTANEOUS
     Route: 058
     Dates: start: 20040205
  2. COUMADIN (WARFARIN SODIUM) [Concomitant]
  3. REVATIO (SILDENAFIL CITRATE) [Concomitant]
  4. LETAIRIS (AMBRISENTAN) [Concomitant]

REACTIONS (4)
  - Pulmonary oedema [None]
  - Anuria [None]
  - Unresponsive to stimuli [None]
  - Fall [None]
